FAERS Safety Report 6084426-9 (Version None)
Quarter: 2009Q1

REPORT INFORMATION
  Report Type: 
  Country: None (occurrence: None)
  Receive Date: 20090219
  Receipt Date: 20090211
  Transmission Date: 20090719
  Serious: Yes (Death)
  Sender: FDA-Public Use
  Company Number: B0559097A

PATIENT
  Age: 74 Year
  Sex: Female

DRUGS (8)
  1. ZYLORIC [Suspect]
     Dosage: 300MG PER DAY
     Route: 048
     Dates: start: 20080723, end: 20081027
  2. TORSEMIDE [Suspect]
     Dosage: 10MG PER DAY
     Route: 048
     Dates: start: 20080130
  3. AMLODIPINE [Suspect]
     Indication: DRUG USE FOR UNKNOWN INDICATION
     Route: 048
     Dates: start: 20070130
  4. SIMVASTATIN [Suspect]
     Dosage: 20MG PER DAY
     Route: 048
     Dates: start: 20080515, end: 20081027
  5. METFORMIN HCL [Suspect]
     Dosage: 1700MG PER DAY
     Route: 048
     Dates: start: 20080515
  6. ADIRO [Suspect]
     Indication: DRUG USE FOR UNKNOWN INDICATION
     Dosage: 300MG PER DAY
     Route: 048
     Dates: start: 20070130, end: 20081027
  7. COZAAR [Suspect]
     Indication: HYPERTENSION
     Dosage: 50MG PER DAY
     Route: 048
     Dates: start: 20070130
  8. ESBERIVEN [Suspect]
     Indication: VARICOSE VEIN
     Route: 048
     Dates: start: 20080229, end: 20081027

REACTIONS (9)
  - APLASTIC ANAEMIA [None]
  - BICYTOPENIA [None]
  - DYSPNOEA [None]
  - ECCHYMOSIS [None]
  - HAEMATOMA [None]
  - PETECHIAE [None]
  - PNEUMONIA [None]
  - PYREXIA [None]
  - RENAL FAILURE [None]
